FAERS Safety Report 9607634 (Version 2)
Quarter: 2013Q4

REPORT INFORMATION
  Report Type: Report from Study
  Country: CA (occurrence: CA)
  Receive Date: 20131009
  Receipt Date: 20131009
  Transmission Date: 20140711
  Serious: Yes (Death, Hospitalization)
  Sender: FDA-Public Use
  Company Number: PHHY2012CA099802

PATIENT
  Age: 61 Year
  Sex: Male

DRUGS (2)
  1. SANDOSTATIN LAR [Suspect]
     Indication: NEUROENDOCRINE TUMOUR
     Dosage: 30 MG, EVERY 4 WEEKS
     Route: 030
     Dates: start: 20120507
  2. SANDOSTATIN LAR [Suspect]
     Indication: METASTASES TO LYMPH NODES

REACTIONS (3)
  - Death [Fatal]
  - Hypertension [Unknown]
  - Malaise [Unknown]
